FAERS Safety Report 6003869-2 (Version None)
Quarter: 2008Q4

REPORT INFORMATION
  Report Type: 
  Country: None (occurrence: None)
  Receive Date: 20081216
  Receipt Date: 20081211
  Transmission Date: 20090506
  Serious: Yes (Death, Life-Threatening, Hospitalization, Other)
  Sender: FDA-Public Use
  Company Number: PHHY2008DE31718

PATIENT
  Sex: Female

DRUGS (33)
  1. VOLTAREN [Suspect]
     Indication: PAIN
     Dosage: UNK
     Route: 048
     Dates: start: 20051203
  2. AMOXICILLIN [Suspect]
     Indication: URINARY TRACT INFECTION
     Dosage: UNK
     Route: 048
     Dates: start: 20051203
  3. CIPROFLOXACIN HYDROCHLORIDE [Suspect]
     Indication: URINARY TRACT INFECTION
     Dosage: UNK
     Route: 048
     Dates: start: 20051203
  4. SIGAPRIM [Suspect]
     Indication: URINARY TRACT INFECTION
     Dosage: UNK
     Route: 048
     Dates: start: 20051203
  5. NOVALGIN [Suspect]
     Indication: PAIN
     Dosage: 3X/DAY (25 DROPS)
     Dates: start: 20030204
  6. TRAMADOL HCL [Suspect]
     Indication: PAIN
     Dosage: 3X/DAY (25 DROPS)
     Route: 048
     Dates: start: 20030204
  7. NOVALGIN [Suspect]
     Dosage: 2.5 G, QD
     Route: 042
  8. TRAMADOL HCL [Suspect]
     Dosage: 200 MG
     Route: 042
  9. IBUPROFEN [Concomitant]
     Indication: PAIN
     Dosage: 600 MG
     Route: 048
     Dates: start: 20051203
  10. NITROGLYCERIN [Concomitant]
     Indication: CORONARY ARTERY DISEASE
     Dosage: UNK
     Route: 048
     Dates: start: 20051203
  11. METOCLOPRAMIDE HYDROCHLORIDE [Concomitant]
     Indication: NAUSEA
     Dosage: UNK
     Route: 048
     Dates: start: 20051203
  12. TAGAMET [Concomitant]
     Dosage: UNK
     Route: 048
     Dates: start: 20051203
  13. VALORON N [Concomitant]
     Indication: PAIN
     Dosage: UNK
     Route: 048
     Dates: start: 20051203
  14. KLOSTERFRAU MELISSENGEIST [Concomitant]
     Indication: CARDIOVASCULAR INSUFFICIENCY
     Dosage: UNK
     Route: 048
     Dates: start: 20051201
  15. KORODIN [Concomitant]
     Indication: CARDIOVASCULAR INSUFFICIENCY
     Dosage: UNK
     Route: 048
     Dates: start: 20051203
  16. LIMPTAR [Concomitant]
     Indication: MUSCLE SPASMS
     Dosage: UNK
     Route: 048
     Dates: start: 20051203
  17. BETAVERT [Concomitant]
     Indication: DIZZINESS
     Dosage: 12 MG, BID
     Route: 048
  18. DECORTIN [Concomitant]
     Indication: OSTEOARTHRITIS
     Dosage: BETWEEN 1 AND 3 TAB/DAY
     Route: 048
     Dates: start: 20030204
  19. IMUREK [Concomitant]
     Indication: RENAL TRANSPLANT
     Dosage: UNK
     Route: 048
     Dates: start: 20030204
  20. CORVATON [Concomitant]
     Indication: CORONARY ARTERY DISEASE
     Dosage: ONCE DAILY
     Route: 048
     Dates: start: 20030204
  21. SORTIS [Concomitant]
     Indication: HYPERCHOLESTEROLAEMIA
     Dosage: ONCE DAILY
     Route: 048
     Dates: start: 20050920
  22. NEXIUM [Concomitant]
     Dosage: ONCE DAILY
     Route: 048
     Dates: start: 20030204
  23. ASPIRIN [Concomitant]
     Indication: THROMBOSIS
     Dosage: ONCE DAILY
     Route: 048
     Dates: start: 20030204
  24. VIGANTOLETTEN [Concomitant]
     Indication: OSTEOPOROSIS
     Dosage: ONCE DAILY
     Route: 048
     Dates: start: 20030204
  25. BETAISODONA [Concomitant]
     Indication: SKIN DISORDER
     Dosage: UNK
     Route: 061
     Dates: start: 20051129
  26. EMBOLEX [Concomitant]
     Indication: THROMBOSIS
     Dosage: 0.5 ML, QD
     Route: 058
  27. METOCLOPRAMIDE HYDROCHLORIDE [Concomitant]
     Dosage: 1 AMPOULE
     Route: 042
  28. OXAZEPAM [Concomitant]
     Indication: SLEEP DISORDER
     Dosage: ONCE DAILY
     Route: 048
  29. IONOSTERIL [Concomitant]
     Indication: FLUID REPLACEMENT
     Route: 042
  30. CONTRAST MEDIA [Concomitant]
     Indication: SCINTIGRAPHY
     Dosage: ONCE DAILY
     Route: 042
  31. DULCOLAX [Concomitant]
     Indication: CONSTIPATION
     Dosage: 2 TAB/DAY
     Route: 048
  32. CLEXANE [Concomitant]
     Indication: THROMBOSIS
     Route: 058
  33. BALDRIAN [Concomitant]
     Indication: SEDATION
     Dosage: 2 TAB/DAY
     Route: 048

REACTIONS (10)
  - BACK PAIN [None]
  - DERMATITIS EXFOLIATIVE [None]
  - ERYTHEMA [None]
  - GASTROINTESTINAL EROSION [None]
  - GENITAL EROSION [None]
  - LIP EROSION [None]
  - PRURITUS [None]
  - RASH PUSTULAR [None]
  - SPINAL OSTEOARTHRITIS [None]
  - TOXIC EPIDERMAL NECROLYSIS [None]
